FAERS Safety Report 5277452-0 (Version None)
Quarter: 2007Q1

REPORT INFORMATION
  Report Type: 
  Country: None (occurrence: None)
  Receive Date: 20061213
  Receipt Date: 20051109
  Transmission Date: 20070707
  Serious: Yes (Hospitalization)
  Sender: FDA-Public Use
  Company Number: 2005UW17066

PATIENT
  Age: 46 Year
  Sex: Male

DRUGS (4)
  1. SEROQUEL [Suspect]
     Indication: AGITATION
     Dosage: 50 MG BID/200 MG HS
     Dates: start: 20051021
  2. SEROQUEL [Suspect]
     Indication: TRAUMATIC BRAIN INJURY
     Dosage: 50 MG BID/200 MG HS
     Dates: start: 20051021
  3. TRAZODONE HCL [Concomitant]
  4. PROPRANOLOL [Concomitant]

REACTIONS (1)
  - HYPONATRAEMIA [None]
